FAERS Safety Report 12394941 (Version 1)
Quarter: 2016Q2

REPORT INFORMATION
  Report Type: Spontaneous
  Country: US (occurrence: US)
  Receive Date: 20160523
  Receipt Date: 20160523
  Transmission Date: 20160815
  Serious: No
  Sender: FDA-Public Use
  Company Number: US-ALLERGAN-1652420US

PATIENT
  Age: 26 Year
  Sex: Female

DRUGS (1)
  1. KYBELLA [Suspect]
     Active Substance: DEOXYCHOLIC ACID
     Indication: FAT TISSUE INCREASED
     Dosage: UNK
     Route: 058
     Dates: start: 20160329, end: 20160329

REACTIONS (3)
  - Swelling [Unknown]
  - Paraesthesia oral [Recovering/Resolving]
  - Toothache [Recovering/Resolving]
